FAERS Safety Report 8290071-7 (Version None)
Quarter: 2012Q2

REPORT INFORMATION
  Report Type: 
  Country: None (occurrence: None)
  Receive Date: 20120412
  Receipt Date: 20120412
  Transmission Date: 20120825
  Serious: Yes (Hospitalization)
  Sender: FDA-Public Use
  Company Number: None

PATIENT
  Sex: Male
  Weight: 87.7 kg

DRUGS (1)
  1. INTRON A [Suspect]
     Dosage: 57 MU
     Dates: end: 20120323

REACTIONS (12)
  - TOXIC ENCEPHALOPATHY [None]
  - HYPOAESTHESIA [None]
  - POSTICTAL STATE [None]
  - DEPRESSION [None]
  - HYPOXIC-ISCHAEMIC ENCEPHALOPATHY [None]
  - DIASTOLIC DYSFUNCTION [None]
  - METABOLIC ENCEPHALOPATHY [None]
  - NEURODEGENERATIVE DISORDER [None]
  - HYPONATRAEMIA [None]
  - ASTHENIA [None]
  - CEREBRAL DISORDER [None]
  - FACIAL PARESIS [None]
